FAERS Safety Report 25527183 (Version 1)
Quarter: 2025Q3

REPORT INFORMATION
  Report Type: Spontaneous
  Country: US (occurrence: US)
  Receive Date: 20250708
  Receipt Date: 20250708
  Transmission Date: 20251020
  Serious: No
  Sender: BRISTOL-MYERS SQUIBB COMPANY
  Company Number: US-BRISTOL-MYERS SQUIBB COMPANY-2025-095698

PATIENT
  Age: 88 Year
  Sex: Female

DRUGS (2)
  1. ELIQUIS [Suspect]
     Active Substance: APIXABAN
     Indication: Product used for unknown indication
     Dosage: BID FOR ONE WEEK THEN 1 A DAY
     Route: 048
     Dates: start: 20250706
  2. ELIQUIS [Suspect]
     Active Substance: APIXABAN
     Dosage: BID FOR ONE WEEK THEN 1 A DAY
     Route: 048

REACTIONS (3)
  - Nausea [Unknown]
  - Disorientation [Unknown]
  - Off label use [Unknown]

NARRATIVE: CASE EVENT DATE: 20250706
